FAERS Safety Report 5156423-9 (Version None)
Quarter: 2006Q4

REPORT INFORMATION
  Report Type: 
  Country: None (occurrence: None)
  Receive Date: 20061122
  Receipt Date: 20060807
  Transmission Date: 20070319
  Serious: Yes (Other)
  Sender: FDA-Public Use
  Company Number: JP-ROCHE-458881

PATIENT
  Age: 56 Year
  Sex: Male
  Weight: 61 kg

DRUGS (6)
  1. PEGASYS [Suspect]
     Route: 058
     Dates: start: 20060522, end: 20060717
  2. PEG-INTRON [Suspect]
     Dosage: ROUTE REPORTED AS INJECTABLE (NOT OTHERWISE SPECIFIED)
     Route: 050
     Dates: start: 20050507, end: 20060515
  3. GATIFLO [Suspect]
     Indication: PNEUMONIA
     Route: 048
     Dates: start: 20060715, end: 20060718
  4. EUGLUCON [Concomitant]
     Route: 048
     Dates: start: 20010802
  5. URSO [Concomitant]
     Route: 048
     Dates: start: 20010802
  6. NEO-MINOPHAGEN C [Concomitant]
     Dosage: REPORTED AS NEOPHAGEN C.
     Route: 048
     Dates: start: 20010802

REACTIONS (1)
  - INTERSTITIAL LUNG DISEASE [None]
